FAERS Safety Report 4868062-5 (Version None)
Quarter: 2005Q4

REPORT INFORMATION
  Report Type: 
  Country: None (occurrence: None)
  Receive Date: 20051229
  Receipt Date: 20050919
  Transmission Date: 20060501
  Serious: Yes (Congenital Anomaly)
  Sender: FDA-Public Use
  Company Number: GB-ABBOTT-05P-167-0311350-00

PATIENT
  Sex: Female
  Weight: 34.7 kg

DRUGS (2)
  1. VALPROATE SODIUM [Suspect]
     Indication: DRUG EXPOSURE DURING PREGNANCY
     Route: 065
  2. CARBAMAZEPINE [Suspect]
     Indication: DRUG EXPOSURE DURING PREGNANCY
     Route: 065

REACTIONS (16)
  - ANTISOCIAL BEHAVIOUR [None]
  - ARTHROPATHY [None]
  - CARDIAC MURMUR [None]
  - CLEFT PALATE [None]
  - DEVELOPMENTAL DELAY [None]
  - DRUG EXPOSURE DURING PREGNANCY [None]
  - FACIAL DYSMORPHISM [None]
  - FEEDING DISORDER NEONATAL [None]
  - FINGER DEFORMITY [None]
  - FOETAL VALPROATE SYNDROME [None]
  - HYPOTONIA [None]
  - OTITIS MEDIA [None]
  - PETIT MAL EPILEPSY [None]
  - STRABISMUS [None]
  - TOE DEFORMITY [None]
  - ULTRASOUND SCAN ABNORMAL [None]
